FAERS Safety Report 17286557 (Version 2)
Quarter: 2020Q1

REPORT INFORMATION
  Report Type: Report from Study
  Country: US (occurrence: US)
  Receive Date: 20200119
  Receipt Date: 20200221
  Transmission Date: 20200409
  Serious: Yes (Other)
  Sender: FDA-Public Use
  Company Number: NVSC2020US006813

PATIENT
  Sex: Female

DRUGS (1)
  1. DUREZOL [Suspect]
     Active Substance: DIFLUPREDNATE
     Indication: PRODUCT USED FOR UNKNOWN INDICATION
     Dosage: 1 GTT, QD
     Route: 047

REACTIONS (9)
  - Blindness [Unknown]
  - Visual impairment [Unknown]
  - Visual field defect [Unknown]
  - Glaucoma [Unknown]
  - Visual acuity reduced [Unknown]
  - Vision blurred [Unknown]
  - Keratopathy [Unknown]
  - Eye pain [Unknown]
  - Swelling of eyelid [Unknown]
